FAERS Safety Report 17833631 (Version 1)
Quarter: 2020Q2

REPORT INFORMATION
  Report Type: Spontaneous
  Country: CA (occurrence: CA)
  Receive Date: 20200528
  Receipt Date: 20200528
  Transmission Date: 20200714
  Serious: Yes (Other)
  Sender: FDA-Public Use
  Company Number: CA-ROCHE-2603311

PATIENT
  Age: 15 Year
  Sex: Female

DRUGS (3)
  1. HUMIRA [Suspect]
     Active Substance: ADALIMUMAB
     Indication: UVEITIS
     Route: 058
  2. METHOTREXATE. [Suspect]
     Active Substance: METHOTREXATE
     Indication: UVEITIS
     Route: 065
  3. MYCOPHENOLATE MOFETIL. [Suspect]
     Active Substance: MYCOPHENOLATE MOFETIL
     Indication: UVEITIS
     Route: 042

REACTIONS (10)
  - C-reactive protein increased [Unknown]
  - Neutrophil count decreased [Unknown]
  - Eye disorder [Unknown]
  - Macular oedema [Unknown]
  - Myopia [Unknown]
  - Off label use [Unknown]
  - Retinal oedema [Unknown]
  - Therapeutic response decreased [Unknown]
  - Abdominal discomfort [Unknown]
  - Product use in unapproved indication [Unknown]
